FAERS Safety Report 20962014 (Version 2)
Quarter: 2024Q2

REPORT INFORMATION
  Report Type: Spontaneous
  Country: US (occurrence: None)
  Receive Date: 20220615
  Receipt Date: 20240613
  Transmission Date: 20240716
  Serious: Yes (Other)
  Sender: FDA-Public Use
  Company Number: US-MDD US Operations-MDD202111-002404

PATIENT
  Age: 73 Year
  Sex: Male
  Weight: 78.51 kg

DRUGS (20)
  1. APOKYN [Suspect]
     Active Substance: APOMORPHINE HYDROCHLORIDE
     Indication: Parkinson^s disease
     Dosage: 30MG/3ML
     Route: 058
  2. APOKYN [Suspect]
     Active Substance: APOMORPHINE HYDROCHLORIDE
     Dosage: NOT PROVIDED
  3. APOKYN [Suspect]
     Active Substance: APOMORPHINE HYDROCHLORIDE
     Dosage: AS ORDERED
     Dates: start: 20190516
  4. APOKYN [Suspect]
     Active Substance: APOMORPHINE HYDROCHLORIDE
     Dosage: 10MG/ML 3ML CARTRIDGE 1 EA CART
     Route: 058
     Dates: start: 202305
  5. APOKYN [Suspect]
     Active Substance: APOMORPHINE HYDROCHLORIDE
     Dosage: INJECT UP TO 0.4ML
     Route: 058
  6. APOKYN [Suspect]
     Active Substance: APOMORPHINE HYDROCHLORIDE
     Dosage: 30 MG/3ML
     Route: 058
  7. GABAPENTIN [Suspect]
     Active Substance: GABAPENTIN
     Indication: Product used for unknown indication
     Dosage: NOT PROVIDED
     Dates: start: 2022
  8. LEVODOPA [Concomitant]
     Active Substance: LEVODOPA
     Dosage: 50/200
  9. AMANTADINE [Concomitant]
     Active Substance: AMANTADINE
     Dosage: 100 MG
  10. POLYETHYLENE GLYCOL [Concomitant]
     Active Substance: POLYETHYLENE GLYCOL
     Dosage: 1450
  11. TAMSULOSIN HYDROCHLORIDE [Concomitant]
     Active Substance: TAMSULOSIN HYDROCHLORIDE
     Dosage: NOT PROVIDED
  12. LORATADINE [Concomitant]
     Active Substance: LORATADINE
     Dosage: NOT PROVIDED
  13. DOCUSATE CALCIUM [Concomitant]
     Active Substance: DOCUSATE CALCIUM
     Dosage: NOT PROVIDED
  14. CHOLECALCIFEROL [Concomitant]
     Active Substance: CHOLECALCIFEROL
     Dosage: NOT PROVIDED
  15. CEPHALEXIN [Concomitant]
     Active Substance: CEPHALEXIN
     Dosage: 125MG/5ML
  16. BACLOFEN [Concomitant]
     Active Substance: BACLOFEN
     Dosage: NOT PROVIDED
  17. VITAMIN C [Concomitant]
     Active Substance: ASCORBIC ACID
     Dosage: NOT PROVIDED
  18. BACLOFEN [Concomitant]
     Active Substance: BACLOFEN
     Dosage: NOT PROVIDED
  19. SINEMET [Concomitant]
     Active Substance: CARBIDOPA\LEVODOPA
     Dosage: 10-100 10MG-100MG
  20. MOTRIN IB [Concomitant]
     Active Substance: IBUPROFEN
     Dosage: NOT PROVIDED

REACTIONS (11)
  - Fall [Unknown]
  - Myalgia [Unknown]
  - Freezing phenomenon [Unknown]
  - Nervous system disorder [Unknown]
  - Skin abrasion [Unknown]
  - Contusion [Unknown]
  - Dyskinesia [Unknown]
  - Fall [Unknown]
  - Injury [Unknown]
  - Device malfunction [Unknown]
  - Device breakage [Unknown]

NARRATIVE: CASE EVENT DATE: 20220101
